FAERS Safety Report 5418980-4 (Version None)
Quarter: 2007Q3

REPORT INFORMATION
  Report Type: 
  Country: None (occurrence: None)
  Receive Date: 20070817
  Receipt Date: 20070807
  Transmission Date: 20080115
  Serious: Yes (Other)
  Sender: FDA-Public Use
  Company Number: US-PFIZER INC-2007066458

PATIENT
  Sex: Male
  Weight: 70.8 kg

DRUGS (3)
  1. CHANTIX [Suspect]
     Indication: SMOKING CESSATION THERAPY
     Route: 048
  2. XANAX [Concomitant]
  3. NEURONTIN [Concomitant]

REACTIONS (2)
  - FACIAL PALSY [None]
  - INTERVERTEBRAL DISC PROTRUSION [None]
